FAERS Safety Report 8049809-6 (Version None)
Quarter: 2012Q1

REPORT INFORMATION
  Report Type: 
  Country: None (occurrence: None)
  Receive Date: 20120111
  Receipt Date: 20120103
  Transmission Date: 20120608
  Serious: Yes (Other)
  Sender: FDA-Public Use
  Company Number: 2011SP035506

PATIENT
  Age: 30 Year
  Sex: Female

DRUGS (6)
  1. WELLBUTRIN [Suspect]
     Indication: PRODUCT USED FOR UNKNOWN INDICATION
     Dosage: 150 MG;QD
     Dates: start: 20110701
  2. LAMOTRIGINE [Concomitant]
  3. LITHIUM CARBONATE [Concomitant]
  4. SAPHRIS [Suspect]
     Indication: BIPOLAR DISORDER
     Dosage: 5 MG;QD;SL, 10 MG;UNK;SL
     Route: 060
     Dates: start: 20110101
  5. SAPHRIS [Suspect]
     Indication: BIPOLAR DISORDER
     Dosage: 5 MG;QD;SL, 10 MG;UNK;SL
     Route: 060
     Dates: start: 20110701
  6. WELLBUTRIN XL [Suspect]
     Indication: PRODUCT USED FOR UNKNOWN INDICATION
     Dosage: 300 MG;UNK
     Dates: start: 20110701

REACTIONS (2)
  - MANIA [None]
  - DEPRESSION [None]
